FAERS Safety Report 9275348 (Version 2)
Quarter: 2013Q2

REPORT INFORMATION
  Report Type: Spontaneous
  Country: BR (occurrence: None)
  Receive Date: 20130430
  Receipt Date: 20130606
  Transmission Date: 20140414
  Serious: Yes (Other)
  Sender: FDA-Public Use
  Company Number: DSJ-2013-09266

PATIENT
  Age: 75 Year
  Sex: Female

DRUGS (7)
  1. BENICAR [Suspect]
     Indication: HYPERTENSION
     Dosage: 40 MG (40 MG, 1 IN 1 D), PER ORAL?
     Route: 048
     Dates: start: 201302
  2. DICLOFENAC SODIUM [Suspect]
     Indication: BLEPHAROPLASTY
     Route: 048
     Dates: start: 201304, end: 201304
  3. VERAPAMIL(VERAPAMIL)(VERAPAMIL) [Concomitant]
  4. CALCIUM(CALCIUM) (CALCIUM) [Concomitant]
  5. PIZOTIFEN(PIZOTIFEN)(PIZOTIFEN) [Concomitant]
  6. ACETAMINOPHEN/CAFFEINE [Concomitant]
  7. PAROXETINE ( PAROXET INE ) ( PAROXET INE ) [Concomitant]

REACTIONS (4)
  - Drug ineffective [None]
  - Arteriosclerosis [None]
  - Blepharoplasty [None]
  - Drug administration error [None]
